FAERS Safety Report 7753852-1 (Version None)
Quarter: 2011Q3

REPORT INFORMATION
  Report Type: 
  Country: None (occurrence: None)
  Receive Date: 20110915
  Receipt Date: 20100501
  Transmission Date: 20111222
  Serious: Yes (Other)
  Sender: FDA-Public Use
  Company Number: US-JNJFOC-20110905197

PATIENT
  Sex: Male

DRUGS (2)
  1. ACETAMINOPHEN [Suspect]
     Indication: PYREXIA
     Route: 065
  2. ACETAMINOPHEN [Suspect]
     Indication: SINUSITIS
     Route: 065

REACTIONS (3)
  - DRUG INEFFECTIVE [None]
  - PYREXIA [None]
  - PRODUCT QUALITY ISSUE [None]
